FAERS Safety Report 9707115 (Version 2)
Quarter: 2014Q1

REPORT INFORMATION
  Report Type: Spontaneous
  Country: CA (occurrence: CA)
  Receive Date: 20131125
  Receipt Date: 20140121
  Transmission Date: 20141002
  Serious: Yes (Hospitalization)
  Sender: FDA-Public Use
  Company Number: CA-BAYER-2013-140504

PATIENT
  Age: 70 Year
  Sex: Male

DRUGS (20)
  1. NEXAVAR [Suspect]
     Indication: HEPATOCELLULAR CARCINOMA
     Dosage: 400 MG, BID
     Route: 048
     Dates: start: 20130226, end: 20130312
  2. NEXAVAR [Suspect]
     Indication: HEPATOCELLULAR CARCINOMA
     Dosage: 400 MG, QD
     Route: 048
     Dates: start: 20130319, end: 20130404
  3. ACETAMINOPHEN [Concomitant]
     Dosage: 1000 MG, QD
     Route: 048
  4. ALENDRONATE SODIUM [Concomitant]
     Dosage: 70 MG, OW
     Route: 048
  5. ASPIRIN [Concomitant]
     Dosage: 80 MG, DIE
     Route: 048
  6. ATORVASTATIN [Concomitant]
     Dosage: 10 MG, DIE
     Route: 048
  7. CALCIUM +VIT D [Concomitant]
     Dosage: 500 MG 400 UNITS / WEEK
     Route: 048
  8. HYDROVAL [Concomitant]
  9. METOPROLOL [Concomitant]
     Dosage: 50 MG, BID
     Route: 048
  10. OMEPRAZOLE [Concomitant]
     Dosage: 20 MG, DIE
     Route: 048
  11. PENTAZOCINE [Concomitant]
     Dosage: 50 MG, UNK
     Route: 048
  12. PREGABALIN [Concomitant]
     Dosage: 75 MG, BID
     Route: 048
     Dates: start: 20130219, end: 201303
  13. URISEC [Concomitant]
  14. HYDROCHLOROTHIAZIDE W/VALSARTAN [Concomitant]
     Dosage: UNK
     Route: 048
  15. VITAMIN D [Concomitant]
     Dosage: 1000 ONCE / WEEK
  16. HYDROCHLOROTHIAZIDE [Concomitant]
     Dosage: 160/85 MG DIE
     Route: 048
  17. METOCLOPRAMIDE [Concomitant]
     Dosage: 10 MG IV X 1 STAT
  18. METOCLOPRAMIDE [Concomitant]
     Dosage: 10 MG IV X 1 (AT 1400 AND 17 H 25)
  19. LACTULOSE [Concomitant]
     Dosage: 45 ML Q 1 HR (2 OR 3 CAPS PER DAY)
  20. LACTULOSE [Concomitant]
     Dosage: 50 ML Q 1 HR.

REACTIONS (10)
  - Alanine aminotransferase increased [Recovered/Resolved]
  - Ammonia increased [Recovered/Resolved]
  - Aspartate aminotransferase increased [Recovered/Resolved]
  - Blood alkaline phosphatase increased [Recovered/Resolved]
  - Blood bilirubin increased [Recovered/Resolved]
  - Blood lactate dehydrogenase increased [Recovered/Resolved]
  - Fatigue [Recovered/Resolved]
  - Gamma-glutamyltransferase increased [Recovered/Resolved]
  - Hepatic encephalopathy [Recovered/Resolved]
  - Confusional state [Recovered/Resolved]
